FAERS Safety Report 22215868 (Version 1)
Quarter: 2023Q2

REPORT INFORMATION
  Report Type: Spontaneous
  Country: US (occurrence: US)
  Receive Date: 20230417
  Receipt Date: 20230417
  Transmission Date: 20230722
  Serious: No
  Sender: FDA-Public Use
  Company Number: US-drreddys-SPO/USA/23/0163026

PATIENT
  Age: 32 Year
  Sex: Female

DRUGS (1)
  1. ZENATANE [Suspect]
     Active Substance: ISOTRETINOIN
     Indication: Acne
     Dosage: RMA ISSUE DATES: 15 NOVEMBER 2022 03:34:53 PM, 07 DECEMBER 2022 04:27:18 PM, 09 JANUARY 2023 09:33:0

REACTIONS (1)
  - Adverse drug reaction [Unknown]
